FAERS Safety Report 6947994-8 (Version None)
Quarter: 2010Q3

REPORT INFORMATION
  Report Type: 
  Country: None (occurrence: None)
  Receive Date: 20100825
  Receipt Date: 20100817
  Transmission Date: 20110219
  Serious: Yes (Other)
  Sender: FDA-Public Use
  Company Number: 004292

PATIENT
  Sex: Female
  Weight: 107.3 kg

DRUGS (8)
  1. CERTOLIZUMAB PEGOL [Suspect]
     Indication: RHEUMATOID ARTHRITIS
     Dosage: 200 MG 1X/2 WEEKS, 200 MG: SCHEDULE OF ADMINISTRATION NOT PROVIDED-TOTAL DOSES: 13 SUBCUTANEOUS
     Route: 058
     Dates: start: 20090513, end: 20091112
  2. METHOTREXATE [Concomitant]
  3. PREDNISONE [Concomitant]
  4. ATENOLOL [Concomitant]
  5. ENALAPRIL [Concomitant]
  6. PRILOSEC [Concomitant]
  7. LASIX [Concomitant]
  8. FLUOXETINE [Concomitant]

REACTIONS (2)
  - BREAST CANCER [None]
  - LYMPHADENOPATHY [None]
